FAERS Safety Report 19473472 (Version 1)
Quarter: 2021Q2

REPORT INFORMATION
  Report Type: Spontaneous
  Country: US (occurrence: US)
  Receive Date: 20210629
  Receipt Date: 20210629
  Transmission Date: 20210717
  Serious: No
  Sender: FDA-Public Use
  Company Number: US-GLAXOSMITHKLINE-2020490529

PATIENT
  Sex: Female
  Weight: 108.86 kg

DRUGS (2)
  1. IBUPROFEN. [Suspect]
     Active Substance: IBUPROFEN
     Indication: FIBROMYALGIA
  2. IBUPROFEN. [Suspect]
     Active Substance: IBUPROFEN
     Indication: NEURALGIA
     Dosage: 800 MG, AS NEEDED
     Dates: start: 2014

REACTIONS (1)
  - Off label use [Unknown]

NARRATIVE: CASE EVENT DATE: 2014
